FAERS Safety Report 24049758 (Version 1)
Quarter: 2024Q3

REPORT INFORMATION
  Report Type: Spontaneous
  Country: FR (occurrence: FR)
  Receive Date: 20240704
  Receipt Date: 20240704
  Transmission Date: 20241016
  Serious: Yes (Hospitalization)
  Sender: RANBAXY
  Company Number: FR-SUN PHARMACEUTICAL INDUSTRIES LTD-2024RR-454735

PATIENT
  Age: 66 Year
  Sex: Male
  Weight: 61 kg

DRUGS (2)
  1. AMOXICILLIN [Suspect]
     Active Substance: AMOXICILLIN
     Indication: Tonsillitis streptococcal
     Dosage: UNK
     Route: 065
     Dates: start: 202401, end: 202401
  2. ACETAMINOPHEN [Suspect]
     Active Substance: ACETAMINOPHEN
     Indication: Tonsillitis streptococcal
     Dosage: UNK
     Route: 065
     Dates: start: 202401, end: 202401

REACTIONS (1)
  - Acute febrile neutrophilic dermatosis [Recovering/Resolving]

NARRATIVE: CASE EVENT DATE: 20240119
